FAERS Safety Report 25681168 (Version 2)
Quarter: 2025Q3

REPORT INFORMATION
  Report Type: Spontaneous
  Country: US (occurrence: US)
  Receive Date: 20250814
  Receipt Date: 20250908
  Transmission Date: 20251021
  Serious: Yes (Hospitalization)
  Sender: XERIS PHARMACEUTICALS
  Company Number: US-BRIAN CONNER SVP QUALITY AND CHIEF COMPLIANCE OFFICER-2025XER00251

PATIENT
  Sex: Female

DRUGS (4)
  1. RECORLEV [Suspect]
     Active Substance: LEVOKETOCONAZOLE
     Indication: Cushing^s syndrome
     Dosage: 150 MG, 2X/DAY
     Route: 048
     Dates: start: 20250331, end: 2025
  2. RECORLEV [Suspect]
     Active Substance: LEVOKETOCONAZOLE
     Dosage: 150 MG, 2X/DAY
     Route: 048
     Dates: start: 2025
  3. LUNESTA [Suspect]
     Active Substance: ESZOPICLONE
     Indication: Sleep disorder
     Dates: end: 2025
  4. LUNESTA [Suspect]
     Active Substance: ESZOPICLONE
     Dates: start: 2025

REACTIONS (10)
  - Intestinal obstruction [Recovering/Resolving]
  - Joint swelling [Recovering/Resolving]
  - Blood pressure decreased [Not Recovered/Not Resolved]
  - Weight decreased [Not Recovered/Not Resolved]
  - Asthenia [Not Recovered/Not Resolved]
  - Mean cell haemoglobin concentration increased [Not Recovered/Not Resolved]
  - Eosinophilic oesophagitis [Not Recovered/Not Resolved]
  - Fatigue [Not Recovered/Not Resolved]
  - Insomnia [Not Recovered/Not Resolved]
  - Peripheral swelling [Recovering/Resolving]

NARRATIVE: CASE EVENT DATE: 20250101
